FAERS Safety Report 7280513-8 (Version None)
Quarter: 2011Q1

REPORT INFORMATION
  Report Type: 
  Country: None (occurrence: None)
  Receive Date: 20110208
  Receipt Date: 20110127
  Transmission Date: 20110831
  Serious: Yes (Other)
  Sender: FDA-Public Use
  Company Number: PHHY2011CZ06789

PATIENT
  Sex: Female

DRUGS (2)
  1. AMOXICILLIN AND CLAVULANATE POTASSIUM [Suspect]
     Indication: BRONCHITIS
     Dosage: 1 G, BID
     Route: 048
     Dates: start: 20110124, end: 20110126
  2. BONEFOS [Concomitant]
     Dosage: 1600 MG, QD, IN THE EVENING

REACTIONS (6)
  - TREMOR [None]
  - GASTROENTERITIS [None]
  - VOMITING [None]
  - MYALGIA [None]
  - DYSPNOEA [None]
  - ASTHENIA [None]
